FAERS Safety Report 7415386-3 (Version None)
Quarter: 2011Q2

REPORT INFORMATION
  Report Type: 
  Country: None (occurrence: None)
  Receive Date: 20110414
  Receipt Date: 20110408
  Transmission Date: 20111010
  Serious: Yes (Other)
  Sender: FDA-Public Use
  Company Number: B0711435A

PATIENT
  Sex: Male

DRUGS (4)
  1. TRIAZOLAM [Concomitant]
     Dosage: .125MG PER DAY
     Route: 048
  2. CARNACULIN [Concomitant]
     Dosage: 75MG PER DAY
     Route: 048
  3. AVOLVE [Suspect]
     Dosage: .5MG PER DAY
     Route: 048
  4. UNKNOWN DRUG [Concomitant]
     Dosage: .2MG PER DAY
     Route: 048

REACTIONS (1)
  - MACULAR DEGENERATION [None]
